FAERS Safety Report 6123072-5 (Version None)
Quarter: 2009Q1

REPORT INFORMATION
  Report Type: 
  Country: None (occurrence: None)
  Receive Date: 20090318
  Receipt Date: 20090305
  Transmission Date: 20090719
  Serious: Yes (Hospitalization)
  Sender: FDA-Public Use
  Company Number: JP-PFIZER INC-2009173779

PATIENT

DRUGS (7)
  1. SELARA [Suspect]
     Indication: CARDIAC FAILURE CHRONIC
     Dosage: 50 MG, 1X/DAY
     Dates: start: 20090122, end: 20090217
  2. TORASEMIDE [Suspect]
     Indication: CARDIAC FAILURE CHRONIC
     Dosage: 4 MG, 1X/DAY
     Route: 048
     Dates: start: 20060405
  3. URINORM [Concomitant]
     Dosage: UNK
     Route: 048
     Dates: start: 20060405
  4. LASIX [Concomitant]
     Dosage: UNK
     Route: 048
     Dates: start: 20060405
  5. WARFARIN [Concomitant]
     Dosage: UNK
     Route: 048
     Dates: start: 20060405
  6. HALCION [Concomitant]
     Dosage: UNK
     Route: 048
  7. CYANOCOBALAMIN [Concomitant]
     Dosage: UNK
     Route: 048

REACTIONS (2)
  - BLOOD CREATININE INCREASED [None]
  - BLOOD UREA INCREASED [None]
